FAERS Safety Report 4430412-1 (Version None)
Quarter: 2004Q3

REPORT INFORMATION
  Report Type: 
  Country: None (occurrence: None)
  Receive Date: 20040820
  Receipt Date: 20011008
  Transmission Date: 20050211
  Serious: Yes (Hospitalization)
  Sender: FDA-Public Use
  Company Number: US-MERCK-01101060

PATIENT
  Age: 51 Year
  Sex: Female
  Weight: 152 kg

DRUGS (10)
  1. [THERAPY UNSPECIFIED] [Concomitant]
     Route: 065
  2. ASPIRIN [Concomitant]
     Route: 065
     Dates: start: 20000329
  3. LIPITOR [Concomitant]
     Route: 048
  4. TIAZAC [Concomitant]
     Route: 065
     Dates: end: 20010508
  5. CARDURA [Concomitant]
     Route: 065
     Dates: end: 20010508
  6. MOTRIN [Concomitant]
     Route: 065
     Dates: start: 20010117
  7. ZESTRIL [Concomitant]
     Route: 065
     Dates: end: 20010508
  8. VIOXX [Suspect]
     Indication: ARTHRITIS
     Route: 048
     Dates: start: 19990101
  9. MERIDIA [Concomitant]
     Route: 065
  10. DETROL [Concomitant]
     Route: 065

REACTIONS (24)
  - ABDOMINAL NEOPLASM [None]
  - ABSCESS [None]
  - ARTHRALGIA [None]
  - CELLULITIS [None]
  - CERVICITIS [None]
  - CHEST PAIN [None]
  - CONSTIPATION [None]
  - DEEP VEIN THROMBOSIS [None]
  - DEPRESSION [None]
  - FACE OEDEMA [None]
  - GASTROENTERITIS [None]
  - GENERALISED OEDEMA [None]
  - HAEMATEMESIS [None]
  - HEADACHE [None]
  - HYPERLIPIDAEMIA [None]
  - ILIAC VEIN OCCLUSION [None]
  - POSTOPERATIVE INFECTION [None]
  - PRODUCTIVE COUGH [None]
  - PULMONARY GRANULOMA [None]
  - SLEEP APNOEA SYNDROME [None]
  - UTERINE LEIOMYOMA [None]
  - VENOUS STENOSIS [None]
  - WHEEZING [None]
  - WOUND DEHISCENCE [None]
